FAERS Safety Report 6902025-0 (Version None)
Quarter: 2010Q3

REPORT INFORMATION
  Report Type: 
  Country: None (occurrence: None)
  Receive Date: 20100803
  Receipt Date: 20080414
  Transmission Date: 20110219
  Serious: No
  Sender: FDA-Public Use
  Company Number: US-PFIZER INC-2008032989

PATIENT
  Sex: Female
  Weight: 81.6 kg

DRUGS (2)
  1. LYRICA [Suspect]
     Indication: FIBROMYALGIA
     Dates: start: 20080301, end: 20080401
  2. LYRICA [Suspect]
     Indication: NEURALGIA

REACTIONS (6)
  - ACTIVITIES OF DAILY LIVING IMPAIRED [None]
  - DRY EYE [None]
  - IMPAIRED DRIVING ABILITY [None]
  - INDIFFERENCE [None]
  - VISION BLURRED [None]
  - VISUAL ACUITY REDUCED [None]
